FAERS Safety Report 8327869-2 (Version None)
Quarter: 2012Q2

REPORT INFORMATION
  Report Type: 
  Country: None (occurrence: None)
  Receive Date: 20120502
  Receipt Date: 20120418
  Transmission Date: 20120825
  Serious: Yes (Hospitalization, Other)
  Sender: FDA-Public Use
  Company Number: CN-MPIJNJ-2012-02950

PATIENT

DRUGS (1)
  1. VELCADE [Suspect]
     Indication: MULTIPLE MYELOMA
     Dosage: 2 MG, UNK
     Route: 042
     Dates: start: 20110314, end: 20111121

REACTIONS (4)
  - PLEURAL EFFUSION [None]
  - LUNG INFECTION [None]
  - SKIN ULCER [None]
  - PYREXIA [None]
